FAERS Safety Report 4277334-7 (Version None)
Quarter: 2004Q1

REPORT INFORMATION
  Report Type: 
  Country: None (occurrence: None)
  Receive Date: 20040121
  Receipt Date: 20040121
  Transmission Date: 20041129
  Serious: Yes (Hospitalization)
  Sender: FDA-Public Use
  Company Number: None

PATIENT
  Age: 80 Year
  Sex: Male

DRUGS (6)
  1. DOFETILIDE  0.125MG   PFIZER [Suspect]
     Indication: ATRIAL FIBRILLATION
     Dosage: 0.125MG  DAILY  ORAL
     Route: 048
     Dates: start: 20030901, end: 20031018
  2. PRILOSEC [Concomitant]
  3. PREDNISONE [Concomitant]
  4. MAGNESIUM [Concomitant]
  5. FUROSEMIDE [Concomitant]
  6. METOLAZONE [Concomitant]

REACTIONS (2)
  - ELECTROCARDIOGRAM QT CORRECTED INTERVAL PROLONGED [None]
  - VENTRICULAR EXTRASYSTOLES [None]
